FAERS Safety Report 10429286 (Version 1)
Quarter: 2014Q3

REPORT INFORMATION
  Report Type: Spontaneous
  Country: US (occurrence: None)
  Receive Date: 20140902
  Receipt Date: 20140902
  Transmission Date: 20150326
  Serious: Yes (Hospitalization)
  Sender: FDA-Public Use
  Company Number: None

PATIENT
  Age: 62 Year
  Sex: Female

DRUGS (14)
  1. FUROSEMIDE. [Concomitant]
     Active Substance: FUROSEMIDE
  2. OMEPRAZOLE. [Concomitant]
     Active Substance: OMEPRAZOLE
  3. ROSUVASTATIN [Concomitant]
     Active Substance: ROSUVASTATIN
  4. SPIRONOLACTONE. [Concomitant]
     Active Substance: SPIRONOLACTONE
  5. ALBUTEROL. [Concomitant]
     Active Substance: ALBUTEROL
  6. DIGOXIN. [Concomitant]
     Active Substance: DIGOXIN
  7. MANOPROLOL SUCCINATE [Concomitant]
  8. MONTELUKAST. [Concomitant]
  9. DOFETILIDE [Suspect]
     Active Substance: DOFETILIDE
     Indication: ATRIAL FIBRILLATION
     Route: 048
     Dates: end: 20140730
  10. FLUTICASONE [Concomitant]
     Active Substance: FLUTICASONE\FLUTICASONE PROPIONATE
  11. SALMETEROL [Concomitant]
     Active Substance: SALMETEROL
  12. WARFARIN [Concomitant]
     Active Substance: WARFARIN
  13. CYCLOBENSAPRISE [Concomitant]
  14. LOSARTAN [Concomitant]
     Active Substance: LOSARTAN

REACTIONS (4)
  - Torsade de pointes [None]
  - Loss of consciousness [None]
  - Head injury [None]
  - Fall [None]

NARRATIVE: CASE EVENT DATE: 20140730
